FAERS Safety Report 22199081 (Version 3)
Quarter: 2024Q4

REPORT INFORMATION
  Report Type: Spontaneous
  Country: BR (occurrence: BR)
  Receive Date: 20230411
  Receipt Date: 20241015
  Transmission Date: 20250115
  Serious: No
  Sender: CELLTRION
  Company Number: BR-CELLTRION INC.-2023BR006914

PATIENT

DRUGS (3)
  1. INFLIXIMAB [Suspect]
     Active Substance: INFLIXIMAB
     Indication: Colitis ulcerative
     Dosage: 3 AMPOULES EVERY MONTH
     Route: 042
  2. MESALAMINE [Concomitant]
     Active Substance: MESALAMINE
     Indication: Colitis ulcerative
     Dosage: 800MG, 4 PILLS PER DAY
     Route: 048
     Dates: start: 202201
  3. AZATHIOPRINE [Concomitant]
     Active Substance: AZATHIOPRINE
     Indication: Colitis ulcerative
     Dosage: 50MG, 2 PILLS PER DAY
     Route: 048
     Dates: start: 202201

REACTIONS (4)
  - Product availability issue [Unknown]
  - Therapeutic response shortened [Unknown]
  - Therapy interrupted [Unknown]
  - Intentional product use issue [Unknown]
